FAERS Safety Report 25970889 (Version 3)
Quarter: 2025Q4

REPORT INFORMATION
  Report Type: Report from Study
  Country: US (occurrence: None)
  Receive Date: 20251028
  Receipt Date: 20251107
  Transmission Date: 20260117
  Serious: Yes (Congenital Anomaly, Other)
  Sender: UCB
  Company Number: US-UCBSA-2025066578

PATIENT

DRUGS (4)
  1. ROZANOLIXIZUMAB [Suspect]
     Active Substance: ROZANOLIXIZUMAB
     Indication: Prophylaxis
     Dosage: 560 MG IN 4 ML
  2. ROZANOLIXIZUMAB [Suspect]
     Active Substance: ROZANOLIXIZUMAB
     Indication: Neonatal lupus erythematosus
  3. HYDROXYCHLOROQUINE [Suspect]
     Active Substance: HYDROXYCHLOROQUINE
     Indication: Product used for unknown indication
     Dosage: 400 MILLIGRAM
  4. OSELTAMIVIR [Concomitant]
     Active Substance: OSELTAMIVIR
     Indication: Influenza
     Dosage: UNK

REACTIONS (3)
  - Neonatal lupus erythematosus [Unknown]
  - Mitral valve incompetence [Recovered/Resolved]
  - Maternal exposure during pregnancy [Unknown]
